FAERS Safety Report 9019372 (Version 1)
Quarter: 2013Q1

REPORT INFORMATION
  Report Type: Spontaneous
  Country: CN (occurrence: CN)
  Receive Date: 20130119
  Receipt Date: 20130119
  Transmission Date: 20140127
  Serious: Yes (Other)
  Sender: FDA-Public Use
  Company Number: PHHY2012CN124506

PATIENT
  Age: 23 None
  Sex: Male
  Weight: 60 kg

DRUGS (1)
  1. TELBIVUDINE [Suspect]
     Indication: CHRONIC HEPATITIS
     Dosage: 600 MG, ONCE DAILY
     Route: 048
     Dates: start: 20100720, end: 20100720

REACTIONS (6)
  - Anaphylactoid reaction [Recovered/Resolved]
  - Blood lactate dehydrogenase increased [Recovered/Resolved]
  - Alpha hydroxybutyrate dehydrogenase increased [Recovered/Resolved]
  - Asthenia [Recovered/Resolved]
  - Pain [Recovered/Resolved]
  - Blood creatine phosphokinase increased [Recovered/Resolved]
